FAERS Safety Report 9655867 (Version 2)
Quarter: 2013Q4

REPORT INFORMATION
  Report Type: Spontaneous
  Country: US (occurrence: US)
  Receive Date: 20131030
  Receipt Date: 20131206
  Transmission Date: 20140711
  Serious: No
  Sender: FDA-Public Use
  Company Number: US-009507513-1310USA001611

PATIENT
  Sex: Female
  Weight: 68.27 kg

DRUGS (2)
  1. DULERA [Suspect]
     Indication: ASTHMA
     Dosage: 100 MICROGRAMS, QD, 1 INHALATION/DAY
     Route: 055
  2. DULERA [Suspect]
     Dosage: 200 MICROGRAM, BID, 2 INHALATION TWICE PER DAY
     Route: 055

REACTIONS (1)
  - Asthma [Recovered/Resolved]
